FAERS Safety Report 12565781 (Version 1)
Quarter: 2016Q3

REPORT INFORMATION
  Report Type: Spontaneous
  Country: US (occurrence: US)
  Receive Date: 20160718
  Receipt Date: 20160718
  Transmission Date: 20161109
  Serious: Yes (Other)
  Sender: FDA-Public Use
  Company Number: US-JNJFOC-20160709616

PATIENT
  Age: 29 Year
  Sex: Male
  Weight: 43.55 kg

DRUGS (3)
  1. INVEGA SUSTENNA [Suspect]
     Active Substance: PALIPERIDONE PALMITATE
     Indication: SCHIZOAFFECTIVE DISORDER
     Dosage: DAY 8 AND THEN ONCE MONTHLY
     Route: 030
     Dates: start: 20160318
  2. INVEGA SUSTENNA [Suspect]
     Active Substance: PALIPERIDONE PALMITATE
     Indication: SCHIZOAFFECTIVE DISORDER
     Dosage: DAY ONE DOSE
     Route: 030
     Dates: start: 201603, end: 201603
  3. INVEGA SUSTENNA [Suspect]
     Active Substance: PALIPERIDONE PALMITATE
     Indication: SCHIZOAFFECTIVE DISORDER
     Dosage: DAY 8 AND THEN ONCE MONTHLY
     Route: 030
     Dates: start: 20160707

REACTIONS (3)
  - Imprisonment [Recovered/Resolved]
  - Weight increased [Not Recovered/Not Resolved]
  - Dyslipidaemia [Not Recovered/Not Resolved]

NARRATIVE: CASE EVENT DATE: 201603
